FAERS Safety Report 11107468 (Version 1)
Quarter: 2015Q2

REPORT INFORMATION
  Report Type: Spontaneous
  Country: DE (occurrence: DE)
  Receive Date: 20150512
  Receipt Date: 20150512
  Transmission Date: 20150821
  Serious: Yes (Other)
  Sender: FDA-Public Use
  Company Number: GXKR2015DE002348

PATIENT

DRUGS (3)
  1. NASIC [Concomitant]
     Active Substance: DEXPANTHENOL\XYLOMETAZOLINE HYDROCHLORIDE
     Indication: NASOPHARYNGITIS
     Route: 064
     Dates: start: 20131207, end: 20131218
  2. FOLIO FORTE [Concomitant]
     Active Substance: FOLIC ACID\VITAMINS
     Indication: PROPHYLAXIS OF NEURAL TUBE DEFECT
     Dosage: MATERNAL DOSE (0.-40.1 GW): 0.8 MG/D
     Route: 064
     Dates: start: 20131107, end: 20140815
  3. IBUPROFEN. [Suspect]
     Active Substance: IBUPROFEN
     Indication: INTERVERTEBRAL DISC PROTRUSION
     Dosage: MATERNAL DOSE (34.-35. GW): 800 MG/D;UNKNOWN HOW LONG IBUPROFEN WAS TAKEN AND IN WHICH EXACT DOSE
     Route: 064

REACTIONS (1)
  - Foetal heart rate deceleration abnormality [Recovered/Resolved]
